FAERS Safety Report 25800655 (Version 1)
Quarter: 2025Q3

REPORT INFORMATION
  Report Type: Spontaneous
  Country: AU (occurrence: AU)
  Receive Date: 20250915
  Receipt Date: 20250915
  Transmission Date: 20251020
  Serious: Yes (Other)
  Sender: ALEXION PHARMACEUTICALS
  Company Number: AU-AstraZeneca-CH-00946599A

PATIENT
  Age: 30 Year
  Sex: Male
  Weight: 60 kg

DRUGS (1)
  1. ULTOMIRIS [Suspect]
     Active Substance: RAVULIZUMAB-CWVZ
     Indication: Atypical haemolytic uraemic syndrome
     Dosage: 3300 MILLIGRAM, Q8W

REACTIONS (3)
  - Schistocytosis [Unknown]
  - Abdominal pain [Unknown]
  - Microangiopathic haemolytic anaemia [Unknown]

NARRATIVE: CASE EVENT DATE: 20250909
